FAERS Safety Report 6993147-7 (Version None)
Quarter: 2010Q3

REPORT INFORMATION
  Report Type: 
  Country: None (occurrence: None)
  Receive Date: 20100917
  Receipt Date: 20100115
  Transmission Date: 20110219
  Serious: Yes (Hospitalization, Other)
  Sender: FDA-Public Use
  Company Number: US-ASTRAZENECA-2009SE09033

PATIENT
  Age: 80 Year
  Sex: Female
  Weight: 77.1 kg

DRUGS (10)
  1. SEROQUEL [Suspect]
     Indication: SCHIZOPHRENIA
     Route: 048
     Dates: start: 20010101
  2. SEROQUEL [Suspect]
     Dosage: 100 TO 200 MG
     Route: 048
     Dates: start: 20031107
  3. AMITRIPTYLINE HCL [Concomitant]
     Dates: start: 20031006
  4. ATENOLOL [Concomitant]
     Dates: start: 20031018
  5. ALPRAZOLAM [Concomitant]
     Dates: start: 20031019
  6. HALOPERIDOL [Concomitant]
     Dates: start: 20031028
  7. EXELON [Concomitant]
     Dates: start: 20031107
  8. LEVOXYL [Concomitant]
     Dates: start: 20031107
  9. PHENAZOPYRIDINE HCL TAB [Concomitant]
     Dates: start: 20040601
  10. TRAZODONE HCL [Concomitant]
     Dates: start: 20040603

REACTIONS (3)
  - DIABETES MELLITUS [None]
  - DIABETIC COMA [None]
  - TYPE 1 DIABETES MELLITUS [None]
